FAERS Safety Report 14653885 (Version 1)
Quarter: 2018Q1

REPORT INFORMATION
  Report Type: Spontaneous
  Country: US (occurrence: US)
  Receive Date: 20180319
  Receipt Date: 20180319
  Transmission Date: 20180509
  Serious: No
  Sender: FDA-Public Use
  Company Number: US-PFIZER INC-2018112428

PATIENT
  Age: 46 Year
  Sex: Male
  Weight: 72.57 kg

DRUGS (1)
  1. GABAPENTIN. [Suspect]
     Active Substance: GABAPENTIN
     Indication: NERVE INJURY
     Dosage: 300 MG, 3X/DAY
     Route: 048
     Dates: start: 201710, end: 201712

REACTIONS (3)
  - Feeling abnormal [Not Recovered/Not Resolved]
  - Intentional product use issue [Unknown]
  - Product use in unapproved indication [Unknown]

NARRATIVE: CASE EVENT DATE: 2018
